FAERS Safety Report 20991376 (Version 1)
Quarter: 2022Q2

REPORT INFORMATION
  Report Type: Report from Study
  Country: US (occurrence: US)
  Receive Date: 20220622
  Receipt Date: 20220622
  Transmission Date: 20220721
  Serious: No
  Sender: FDA-Public Use
  Company Number: US-NOVARTISTESTPH-NVSC2022US142636

PATIENT
  Sex: Male

DRUGS (1)
  1. COSENTYX [Suspect]
     Active Substance: SECUKINUMAB
     Indication: Psoriasis
     Dosage: 300 MG(EVERY WEEK X 5 WEEKS THEN EVERY 4)
     Route: 058
     Dates: start: 20220603

REACTIONS (3)
  - Increased appetite [Unknown]
  - Pain in extremity [Unknown]
  - Drug ineffective [Unknown]
